FAERS Safety Report 19869365 (Version 2)
Quarter: 2021Q4

REPORT INFORMATION
  Report Type: Spontaneous
  Country: SI (occurrence: SI)
  Receive Date: 20210922
  Receipt Date: 20211005
  Transmission Date: 20220303
  Serious: Yes (Other)
  Sender: FDA-Public Use
  Company Number: SI-002147023-NVSC2021SI088702

PATIENT
  Sex: Female

DRUGS (11)
  1. PACLITAXEL [Suspect]
     Active Substance: PACLITAXEL
     Indication: Breast cancer metastatic
     Dosage: UNK (5 + 5 MONTHS) (START DATE: -SEP-2019)
     Route: 065
     Dates: end: 202001
  2. ABEMACICLIB [Suspect]
     Active Substance: ABEMACICLIB
     Indication: Breast cancer metastatic
     Dosage: UNK (START DATE: -JUL-2020)
     Route: 065
     Dates: end: 202008
  3. LETROZOLE [Suspect]
     Active Substance: LETROZOLE
     Indication: Breast cancer metastatic
     Dosage: UNK (5 YEARS AND 8 MONTHS)
     Route: 065
     Dates: start: 200811, end: 201406
  4. DENOSUMAB [Suspect]
     Active Substance: DENOSUMAB
     Indication: Breast cancer metastatic
     Dosage: UNK (START DATE: -MAY-2015)
     Route: 065
  5. FULVESTRANT [Suspect]
     Active Substance: FULVESTRANT
     Indication: Breast cancer metastatic
     Dosage: UNK (1 YEAR AND 3 MONTHS) (START DATE: -APR-2015)
     Route: 065
     Dates: end: 201606
  6. FULVESTRANT [Suspect]
     Active Substance: FULVESTRANT
     Dosage: UNK (START DATE: -JUL-2020)
     Route: 065
     Dates: end: 202009
  7. EXEMESTANE [Suspect]
     Active Substance: EXEMESTANE
     Indication: Breast cancer metastatic
     Dosage: UNK (9 MONTHS) (START DATE: -JUL-2014)
     Route: 065
     Dates: end: 201503
  8. CAPECITABINE [Suspect]
     Active Substance: CAPECITABINE
     Indication: Breast cancer metastatic
     Dosage: UNK (2 YEARS AND 9 MONTHS) (START DATE: -DEC-2016)
     Route: 065
     Dates: end: 201908
  9. MEGESTROL ACETATE [Suspect]
     Active Substance: MEGESTROL ACETATE
     Indication: Breast cancer metastatic
     Dosage: UNK (MAINTENANCE THERAPY) (START DATE: -DEC-2016)
     Route: 065
     Dates: end: 201711
  10. CLODRONATE DISOD. [Concomitant]
     Indication: Product used for unknown indication
     Dosage: UNK (START DATE: -MAY-2015)
     Route: 065
     Dates: end: 201505
  11. CLODRONATE DISOD. [Concomitant]
     Dosage: UNK (STOPPED AFTER 5 YEARS)
     Route: 065

REACTIONS (14)
  - Malignant neoplasm progression [Not Recovered/Not Resolved]
  - Metastases to liver [Not Recovered/Not Resolved]
  - Metastases to lung [Unknown]
  - Breast cancer metastatic [Not Recovered/Not Resolved]
  - Neutropenia [Unknown]
  - Hepatic lesion [Unknown]
  - PIK3CA-activated mutation [Unknown]
  - Pulmonary mass [Unknown]
  - Weight decreased [Unknown]
  - Bone pain [Unknown]
  - Carbohydrate antigen 15-3 increased [Not Recovered/Not Resolved]
  - Liver disorder [Unknown]
  - Arthralgia [Unknown]
  - Hepatic steatosis [Not Recovered/Not Resolved]

NARRATIVE: CASE EVENT DATE: 20140601
